FAERS Safety Report 18497852 (Version 1)
Quarter: 2020Q4

REPORT INFORMATION
  Report Type: Spontaneous
  Country: US (occurrence: US)
  Receive Date: 20201112
  Receipt Date: 20201112
  Transmission Date: 20210114
  Serious: No
  Sender: FDA-Public Use
  Company Number: US-THERAPEUTICSMD-2020TMD03286

PATIENT
  Sex: Female
  Weight: 55.78 kg

DRUGS (2)
  1. BIJUVA [Suspect]
     Active Substance: ESTRADIOL\PROGESTERONE
     Indication: MENOPAUSAL SYMPTOMS
     Dosage: 1/100 MG (1 CAPSULE), 1X/DAY, EVERY EVENING WITH FOOD
     Route: 048
     Dates: start: 202001, end: 202003
  2. NEXIUM [Concomitant]
     Active Substance: ESOMEPRAZOLE MAGNESIUM

REACTIONS (5)
  - Fear [Recovered/Resolved]
  - Morning sickness [Not Recovered/Not Resolved]
  - Off label use [Recovered/Resolved]
  - Anxiety [Not Recovered/Not Resolved]
  - Breast tenderness [Recovered/Resolved]

NARRATIVE: CASE EVENT DATE: 2020
